FAERS Safety Report 20620999 (Version 2)
Quarter: 2022Q2

REPORT INFORMATION
  Report Type: Spontaneous
  Country: US (occurrence: US)
  Receive Date: 20220322
  Receipt Date: 20220401
  Transmission Date: 20220721
  Serious: No
  Sender: FDA-Public Use
  Company Number: US-drreddys-LIT/USA/22/0147869

PATIENT
  Age: 75 Year
  Sex: Female

DRUGS (4)
  1. IMATINIB MESYLATE [Suspect]
     Active Substance: IMATINIB MESYLATE
     Indication: Chronic myeloid leukaemia
  2. IMATINIB MESYLATE [Suspect]
     Active Substance: IMATINIB MESYLATE
     Dosage: IMATINIB DOSE WAS MODIFIED TO 200MG TWICE A DAY
  3. IMATINIB MESYLATE [Suspect]
     Active Substance: IMATINIB MESYLATE
     Dosage: IMATINIB WAS EVENTUALLY REDUCED TO 300MG DAILY
  4. IMATINIB MESYLATE [Suspect]
     Active Substance: IMATINIB MESYLATE

REACTIONS (2)
  - Muscle spasms [Unknown]
  - Periorbital oedema [Unknown]
